FAERS Safety Report 5334187-3 (Version None)
Quarter: 2007Q2

REPORT INFORMATION
  Report Type: 
  Country: None (occurrence: None)
  Receive Date: 20070523
  Receipt Date: 20070523
  Transmission Date: 20071010
  Serious: Yes (Other)
  Sender: FDA-Public Use
  Company Number: None

PATIENT
  Sex: Female
  Weight: 68.0396 kg

DRUGS (1)
  1. PANDEL [Suspect]
     Indication: SKIN DISCOLOURATION
     Dosage: TOPICAL STARTED ONE YEAR AGO
     Route: 061

REACTIONS (1)
  - DRUG INEFFECTIVE [None]
